FAERS Safety Report 25836817 (Version 1)
Quarter: 2025Q3

REPORT INFORMATION
  Report Type: Spontaneous
  Country: US (occurrence: US)
  Receive Date: 20250923
  Receipt Date: 20250923
  Transmission Date: 20251020
  Serious: No
  Sender: SANOFI AVENTIS
  Company Number: US-SA-2025SA281225

PATIENT
  Age: 17 Year
  Sex: Female

DRUGS (2)
  1. DUPIXENT [Suspect]
     Active Substance: DUPILUMAB
     Indication: Urticaria
     Route: 058
     Dates: start: 20250822, end: 20250822
  2. XOLAIR [Concomitant]
     Active Substance: OMALIZUMAB

REACTIONS (6)
  - Hyperhidrosis [Unknown]
  - Nausea [Unknown]
  - Malaise [Unknown]
  - Pallor [Unknown]
  - Blood pressure decreased [Unknown]
  - Product use in unapproved indication [Unknown]

NARRATIVE: CASE EVENT DATE: 20250822
